FAERS Safety Report 7238551-7 (Version None)
Quarter: 2011Q1

REPORT INFORMATION
  Report Type: 
  Country: None (occurrence: None)
  Receive Date: 20110121
  Receipt Date: 20110119
  Transmission Date: 20110831
  Serious: Yes (Death, Other)
  Sender: FDA-Public Use
  Company Number: US-JNJFOC-20110105228

PATIENT
  Sex: Female
  Weight: 61.24 kg

DRUGS (9)
  1. UNKNOWN MEDICATION [Concomitant]
     Indication: CARDIAC DISORDER
     Route: 065
  2. PAIN MEDICATION [Concomitant]
     Indication: PAIN
     Route: 065
  3. MORPHINE [Suspect]
     Indication: PAIN
     Route: 065
  4. NITROGLYCERIN [Concomitant]
     Route: 065
  5. FEMARA [Concomitant]
     Indication: NEOPLASM MALIGNANT
     Route: 065
  6. CELEBREX [Suspect]
     Indication: ARTHRITIS
     Route: 048
  7. FENTANYL [Suspect]
     Indication: PAIN
     Route: 065
  8. DEPAKOTE [Concomitant]
     Route: 065
  9. CARTIA XT [Concomitant]
     Indication: CARDIAC DISORDER
     Route: 065

REACTIONS (2)
  - TOXICITY TO VARIOUS AGENTS [None]
  - MYOCARDIAL INFARCTION [None]
